FAERS Safety Report 18902213 (Version 1)
Quarter: 2021Q1

REPORT INFORMATION
  Report Type: Spontaneous
  Country: US (occurrence: US)
  Receive Date: 20210217
  Receipt Date: 20210217
  Transmission Date: 20210420
  Serious: Yes (Other)
  Sender: FDA-Public Use
  Company Number: US-NOVEN PHARMACEUTICALS, INC.-2020US009258

PATIENT
  Age: 11 Year
  Sex: Female
  Weight: 34.01 kg

DRUGS (8)
  1. CETRIZINE [Concomitant]
     Active Substance: CETIRIZINE HYDROCHLORIDE
     Indication: PRODUCT USED FOR UNKNOWN INDICATION
     Dosage: 100 MG
  2. CLARITIN ALLERGIC [Concomitant]
     Active Substance: OXYMETAZOLINE HYDROCHLORIDE
     Indication: HYPERSENSITIVITY
     Route: 048
  3. DAYTRANA [Suspect]
     Active Substance: METHYLPHENIDATE
     Indication: OFF LABEL USE
  4. DAYTRANA [Suspect]
     Active Substance: METHYLPHENIDATE
     Indication: BIPOLAR DISORDER
     Dosage: 15MG, 1.5 PATCHES OF 10 MG DOSE
     Route: 062
     Dates: start: 20200722
  5. DAYTRANA [Suspect]
     Active Substance: METHYLPHENIDATE
     Indication: ATTENTION DEFICIT HYPERACTIVITY DISORDER
     Dosage: 10 MG, 1 PATCH
     Route: 062
     Dates: start: 202005, end: 2020
  6. DAYTRANA [Suspect]
     Active Substance: METHYLPHENIDATE
     Indication: OBSESSIVE-COMPULSIVE DISORDER
     Dosage: 15 MG, 1 PATCH
     Route: 062
     Dates: start: 20200717, end: 20200722
  7. VALPROIC ACID. [Concomitant]
     Active Substance: VALPROIC ACID
     Indication: PRODUCT USED FOR UNKNOWN INDICATION
     Dosage: 250 MG, BID
  8. SERTRALINE [Concomitant]
     Active Substance: SERTRALINE HYDROCHLORIDE
     Indication: PRODUCT USED FOR UNKNOWN INDICATION
     Dosage: 100 MG,DAILY
     Route: 065

REACTIONS (6)
  - Wrong technique in product usage process [Not Recovered/Not Resolved]
  - Product administration error [Recovered/Resolved]
  - Off label use [Not Recovered/Not Resolved]
  - Product quality issue [Recovered/Resolved]
  - Anger [Unknown]
  - Exposure via direct contact [Not Recovered/Not Resolved]

NARRATIVE: CASE EVENT DATE: 2020
